FAERS Safety Report 9506419 (Version 1)
Quarter: 2013Q1

REPORT INFORMATION
  Report Type: Spontaneous
  Country: US (occurrence: None)
  Receive Date: 20130301
  Receipt Date: 20130301
  Transmission Date: 20140127
  Serious: Yes (Hospitalization)
  Sender: FDA-Public Use
  Company Number: RB-42169-2012

PATIENT
  Sex: Female

DRUGS (3)
  1. SUBOXONE [Suspect]
     Indication: DRUG DEPENDENCE
     Route: 060
     Dates: start: 2009, end: 2009
  2. HEROIN [Suspect]
     Indication: DRUG DEPENDENCE
     Route: 042
     Dates: start: 2011, end: 201207
  3. CELEXA [Concomitant]

REACTIONS (2)
  - Drug withdrawal syndrome [None]
  - Drug dependence [None]
